FAERS Safety Report 12986616 (Version 4)
Quarter: 2024Q2

REPORT INFORMATION
  Report Type: Report from Study
  Country: CA (occurrence: CA)
  Receive Date: 20161130
  Receipt Date: 20240424
  Transmission Date: 20240716
  Serious: Yes (Other)
  Sender: FDA-Public Use
  Company Number: CA-GLAXOSMITHKLINE-CA2016GSK176041

PATIENT

DRUGS (5)
  1. MEPOLIZUMAB [Suspect]
     Active Substance: MEPOLIZUMAB
     Indication: Asthma
     Dosage: 100 MG, Z
     Route: 058
     Dates: start: 20161213
  2. VENTOLIN [Suspect]
     Active Substance: ALBUTEROL SULFATE
     Indication: Product used for unknown indication
     Dosage: UNK
  3. ADVAIR DISKUS [Suspect]
     Active Substance: FLUTICASONE PROPIONATE\SALMETEROL XINAFOATE
     Indication: Product used for unknown indication
     Dosage: 2 PUFF(S), BID
  4. PREDNISONE [Suspect]
     Active Substance: PREDNISONE
     Indication: Product used for unknown indication
     Dosage: 5 MG, QD
     Route: 048
     Dates: end: 201707
  5. OMNARIS [Suspect]
     Active Substance: CICLESONIDE
     Indication: Product used for unknown indication
     Dosage: UNK, BID

REACTIONS (16)
  - Eosinophilic granulomatosis with polyangiitis [Unknown]
  - Abortion spontaneous [Unknown]
  - Deep vein thrombosis [Unknown]
  - Pericarditis [Unknown]
  - Pericardial drainage [Unknown]
  - Labyrinthitis [Unknown]
  - Sinusitis [Unknown]
  - Lung infiltration [Unknown]
  - Pulmonary mass [Unknown]
  - Pleurisy [Unknown]
  - Peripheral sensory neuropathy [Unknown]
  - Adenomyosis [Unknown]
  - Livedo reticularis [Unknown]
  - Skin mass [Unknown]
  - Mouth ulceration [Unknown]
  - Exposure during pregnancy [Unknown]
